FAERS Safety Report 8958685 (Version 1)
Quarter: 2012Q4

REPORT INFORMATION
  Report Type: 
  Country: BR (occurrence: BR)
  Receive Date: 20121212
  Receipt Date: 20121212
  Transmission Date: 20130627
  Serious: Yes (Hospitalization)
  Sender: FDA-Public Use
  Company Number: BR-SANOFI-AVENTIS-2012SA033577

PATIENT
  Age: 27 Year
  Sex: Female
  Weight: 66 kg

DRUGS (2)
  1. LANTUS [Suspect]
     Indication: TYPE 1 DIABETES MELLITUS
     Dosage: dose: 52IU in the morning and 20 IU at night
start date: about 1 month ago
     Route: 058
     Dates: start: 201211
  2. HUMALOG [Concomitant]
     Indication: TYPE I DIABETES MELLITUS

REACTIONS (5)
  - Urinary tract infection [Recovered/Resolved]
  - Bacteraemia [Recovered/Resolved]
  - Pneumonia [Recovered/Resolved]
  - Exposure during pregnancy [Unknown]
  - Drug administration error [Unknown]
